FAERS Safety Report 18698989 (Version 1)
Quarter: 2021Q1

REPORT INFORMATION
  Report Type: Spontaneous
  Country: US (occurrence: US)
  Receive Date: 20210104
  Receipt Date: 20210104
  Transmission Date: 20210419
  Serious: No
  Sender: FDA-Public Use
  Company Number: US-BAUSCH-BL-2020-036956

PATIENT
  Age: 59 Year
  Sex: Female

DRUGS (1)
  1. PROLENSA [Suspect]
     Active Substance: BROMFENAC SODIUM
     Indication: TRABECULOPLASTY
     Dosage: 1 GTT IN BOTH EYES, EVERY 24 HOUR FOR 4 DAYS
     Route: 047
     Dates: start: 20201208

REACTIONS (2)
  - Lacrimation increased [Recovering/Resolving]
  - Eye irritation [Recovering/Resolving]

NARRATIVE: CASE EVENT DATE: 20201208
